FAERS Safety Report 9661326 (Version 4)
Quarter: 2013Q4

REPORT INFORMATION
  Report Type: Spontaneous
  Country: CN (occurrence: CN)
  Receive Date: 20131031
  Receipt Date: 20131211
  Transmission Date: 20140711
  Serious: Yes (Hospitalization)
  Sender: FDA-Public Use
  Company Number: CN-009507513-1310CHN011845

PATIENT
  Age: 74 Year
  Sex: Male

DRUGS (8)
  1. SINGULAIR (LOCAL DIST) [Suspect]
     Indication: RHINITIS ALLERGIC
     Dosage: 10 MG, QD
     Route: 048
     Dates: start: 20100810, end: 201008
  2. SINGULAIR (LOCAL DIST) [Suspect]
     Indication: ALLERGIC PHARYNGITIS
  3. LORATADINE [Concomitant]
     Indication: RHINITIS ALLERGIC
     Dosage: 10 MG, QD
     Route: 048
  4. LORATADINE [Concomitant]
     Indication: ALLERGIC PHARYNGITIS
  5. NIFEDIPINE [Concomitant]
     Indication: HYPERTENSION
  6. ALFUZOSIN HYDROCHLORIDE [Concomitant]
     Indication: BENIGN PROSTATIC HYPERPLASIA
  7. FINASTERIDE [Concomitant]
     Indication: BENIGN PROSTATIC HYPERPLASIA
  8. CHLORPHENIRAMINE [Concomitant]
     Indication: RHINITIS ALLERGIC

REACTIONS (1)
  - Drug-induced liver injury [Recovered/Resolved]
